FAERS Safety Report 8130947-4 (Version None)
Quarter: 2012Q1

REPORT INFORMATION
  Report Type: 
  Country: None (occurrence: None)
  Receive Date: 20120213
  Receipt Date: 20120207
  Transmission Date: 20120608
  Serious: No
  Sender: FDA-Public Use
  Company Number: US-PFIZER INC-2012034274

PATIENT

DRUGS (1)
  1. LYRICA [Suspect]
     Dosage: 500 MG, DAILY (100MG BID AND 300MG QD)
     Dates: start: 20100101, end: 20120126

REACTIONS (1)
  - NEURALGIA [None]
